FAERS Safety Report 19860292 (Version 1)
Quarter: 2021Q3

REPORT INFORMATION
  Report Type: Spontaneous
  Country: US (occurrence: US)
  Receive Date: 20210920
  Receipt Date: 20210920
  Transmission Date: 20211014
  Serious: No
  Sender: FDA-Public Use
  Company Number: US-AMNEAL PHARMACEUTICALS-2021-AMRX-02525

PATIENT
  Age: 29 Year
  Sex: Female
  Weight: 53.97 kg

DRUGS (1)
  1. NORELGESTROMIN/ETHINYL ESTRADIOL TRANSDERMAL SYSTEM [Suspect]
     Active Substance: ETHINYL ESTRADIOL\NORELGESTROMIN
     Indication: CONTRACEPTION
     Dosage: 1X/WEEK
     Route: 062
     Dates: start: 20210615

REACTIONS (3)
  - Product adhesion issue [Unknown]
  - Heavy menstrual bleeding [Not Recovered/Not Resolved]
  - Intermenstrual bleeding [Not Recovered/Not Resolved]

NARRATIVE: CASE EVENT DATE: 20210616
